FAERS Safety Report 7671283-X (Version None)
Quarter: 2011Q3

REPORT INFORMATION
  Report Type: 
  Country: None (occurrence: None)
  Receive Date: 20110809
  Receipt Date: 20110804
  Transmission Date: 20111222
  Serious: Yes (Other)
  Sender: FDA-Public Use
  Company Number: US-BAYER-2011-060352

PATIENT
  Age: 51 Year
  Sex: Female

DRUGS (2)
  1. ANALGESICS [Concomitant]
     Indication: BACK PAIN
     Dosage: UNK
  2. SORAFENIB (RAF KINASE INHIBITOR) [Suspect]
     Indication: HEPATIC NEOPLASM MALIGNANT
     Dosage: 400 MG, BID
     Route: 048
     Dates: start: 20110706, end: 20110729

REACTIONS (6)
  - SKIN EXFOLIATION [None]
  - TENDERNESS [None]
  - BACK PAIN [None]
  - BLOOD POTASSIUM DECREASED [None]
  - FATIGUE [None]
  - TUMOUR PAIN [None]
